FAERS Safety Report 4311055-7 (Version None)
Quarter: 2004Q1

REPORT INFORMATION
  Report Type: 
  Country: None (occurrence: None)
  Receive Date: 20040302
  Receipt Date: 20040223
  Transmission Date: 20041129
  Serious: Yes (Hospitalization)
  Sender: FDA-Public Use
  Company Number: US-JNJFOC-20040205871

PATIENT
  Age: 80 Year
  Sex: Male

DRUGS (7)
  1. INFLIXIMAB  (INFLIXIMAB, RECOMBINANT) LYOPHILIZED POWDER [Suspect]
     Indication: RHEUMATOID ARTHRITIS
     Dosage: INTRAVENOUS
     Route: 042
     Dates: start: 20010321
  2. CELEBREX [Concomitant]
  3. DILTIAZEM HCL (DILTIAZEM HYDROCHLORIDE) [Concomitant]
  4. PREDNISONE [Concomitant]
  5. TUMS (CALCIUM CARBONATE) [Concomitant]
  6. ADVIL [Concomitant]
  7. FLOMAX [Concomitant]

REACTIONS (1)
  - RESPIRATORY DISORDER [None]
